FAERS Safety Report 7798797-6 (Version None)
Quarter: 2011Q4

REPORT INFORMATION
  Report Type: 
  Country: None (occurrence: None)
  Receive Date: 20111004
  Receipt Date: 20111004
  Transmission Date: 20120403
  Serious: Yes (Hospitalization, Other)
  Sender: FDA-Public Use
  Company Number: None

PATIENT
  Sex: Female
  Weight: 63.5036 kg

DRUGS (2)
  1. BUPROPION HCL [Suspect]
     Indication: BIPOLAR I DISORDER
     Dosage: 100 MG SR 200 MG SR
     Dates: start: 20050101
  2. BUPROPION HCL [Suspect]
     Indication: BIPOLAR I DISORDER
     Dosage: 100 MG SR 200 MG SR
     Dates: start: 20050101

REACTIONS (5)
  - DEPRESSION [None]
  - PRODUCT SUBSTITUTION ISSUE [None]
  - TREMOR [None]
  - DRUG INEFFECTIVE [None]
  - ANXIETY [None]
